FAERS Safety Report 9265156 (Version 1)
Quarter: 2013Q2

REPORT INFORMATION
  Report Type: Report from Study
  Country: BR (occurrence: BR)
  Receive Date: 20130501
  Receipt Date: 20130501
  Transmission Date: 20140414
  Serious: Yes (Hospitalization)
  Sender: FDA-Public Use
  Company Number: BR-US-EMD SERONO, INC.-7207957

PATIENT
  Age: 33 Year
  Sex: Female

DRUGS (1)
  1. REBIF [Suspect]
     Indication: MULTIPLE SCLEROSIS
     Dates: start: 20120923

REACTIONS (3)
  - Vision blurred [Recovered/Resolved]
  - Tremor [Recovered/Resolved]
  - Central nervous system lesion [Recovered/Resolved]
